FAERS Safety Report 5758825-6 (Version None)
Quarter: 2008Q2

REPORT INFORMATION
  Report Type: 
  Country: None (occurrence: None)
  Receive Date: 20080604
  Receipt Date: 20080603
  Transmission Date: 20081010
  Serious: Yes (Hospitalization)
  Sender: FDA-Public Use
  Company Number: ES-BRISTOL-MYERS SQUIBB COMPANY-14213417

PATIENT
  Age: 42 Year
  Sex: Male

DRUGS (2)
  1. SPRYCEL [Suspect]
     Indication: LEUKAEMIA
     Route: 048
     Dates: start: 20060318, end: 20080227
  2. DEPOCYT [Suspect]
     Indication: LEUKAEMIA
     Route: 037
     Dates: start: 20080229, end: 20080229

REACTIONS (1)
  - LEUKOENCEPHALOPATHY [None]
